FAERS Safety Report 15077051 (Version 2)
Quarter: 2018Q2

REPORT INFORMATION
  Report Type: Report from Study
  Country: ES (occurrence: ES)
  Receive Date: 20180627
  Receipt Date: 20180629
  Transmission Date: 20180711
  Serious: Yes (Death, Hospitalization, Other)
  Sender: FDA-Public Use
  Company Number: ES-PFIZER INC-2018257288

PATIENT
  Age: 37 Year
  Sex: Female
  Weight: 58 kg

DRUGS (6)
  1. PACLITAXEL. [Suspect]
     Active Substance: PACLITAXEL
     Indication: BREAST CANCER
     Dosage: 80 MG/M2, UNK
     Route: 042
     Dates: start: 20160705, end: 20160802
  2. TRANEXAMIC ACID. [Concomitant]
     Active Substance: TRANEXAMIC ACID
     Dosage: 500 MG, UNK
     Route: 048
     Dates: start: 20160805
  3. OXICODONA [Concomitant]
     Active Substance: OXYCODONE
     Dosage: 10 MG, UNK
     Route: 048
     Dates: start: 20160704
  4. IBUPROFEN. [Concomitant]
     Active Substance: IBUPROFEN
     Dosage: 3 MG, UNK
     Route: 048
     Dates: start: 20160704
  5. FENTANYL. [Concomitant]
     Active Substance: FENTANYL
     Dosage: 200 UG, UNK
     Route: 048
     Dates: start: 20160704
  6. BEVACIZUMAB. [Suspect]
     Active Substance: BEVACIZUMAB
     Indication: BREAST CANCER
     Dosage: 5 MG/KG,  EVERY 2 WEEKS
     Route: 042
     Dates: start: 20160705, end: 20160802

REACTIONS (10)
  - Aspartate aminotransferase increased [Not Recovered/Not Resolved]
  - Asthenia [Not Recovered/Not Resolved]
  - Vomiting [Not Recovered/Not Resolved]
  - Hepatic function abnormal [Fatal]
  - Blood bilirubin increased [Not Recovered/Not Resolved]
  - Hepatic failure [Unknown]
  - Periodontal disease [Recovered/Resolved]
  - Platelet count decreased [Not Recovered/Not Resolved]
  - Alanine aminotransferase increased [Not Recovered/Not Resolved]
  - Periodontal disease [Not Recovered/Not Resolved]

NARRATIVE: CASE EVENT DATE: 20160801
